FAERS Safety Report 7626773 (Version 3)
Quarter: 2016Q2

REPORT INFORMATION
  Report Type: Spontaneous
  Country: US (occurrence: US)
  Receive Date: 20101013
  Receipt Date: 20160422
  Transmission Date: 20160815
  Serious: No
  Sender: FDA-Public Use
  Company Number: US-ASTRAZENECA-2010SE22945

PATIENT
  Age: 943 Month
  Sex: Female
  Weight: 81.6 kg

DRUGS (8)
  1. SYMBICORT [Suspect]
     Active Substance: BUDESONIDE\FORMOTEROL FUMARATE DIHYDRATE
     Indication: CHRONIC OBSTRUCTIVE PULMONARY DISEASE
     Dosage: 160/ 4.5 MCG, TWO INHALATIONS TWICE DAILY
     Route: 055
     Dates: start: 200912
  2. ZANTAC [Concomitant]
     Active Substance: RANITIDINE HYDROCHLORIDE
     Dosage: TWO TIMES A DAY
  3. RISPERDAL [Concomitant]
     Active Substance: RISPERIDONE
  4. CELEXA [Concomitant]
     Active Substance: CITALOPRAM HYDROBROMIDE
  5. NAVANE [Concomitant]
     Active Substance: THIOTHIXENE
  6. OXYGEN. [Concomitant]
     Active Substance: OXYGEN
     Indication: DYSPNOEA
  7. LITHIUM. [Concomitant]
     Active Substance: LITHIUM
  8. LITHIUM. [Concomitant]
     Active Substance: LITHIUM

REACTIONS (6)
  - Circumstance or information capable of leading to medication error [Unknown]
  - Feeling cold [Unknown]
  - Intentional device misuse [Unknown]
  - Dyspnoea [Unknown]
  - Fatigue [Unknown]
  - Chills [Unknown]

NARRATIVE: CASE EVENT DATE: 200912
